FAERS Safety Report 8353711-X (Version None)
Quarter: 2012Q2

REPORT INFORMATION
  Report Type: 
  Country: None (occurrence: None)
  Receive Date: 20120511
  Receipt Date: 20110913
  Transmission Date: 20120825
  Serious: No
  Sender: FDA-Public Use
  Company Number: US-GLAXOSMITHKLINE-A0944803A

PATIENT
  Sex: Female

DRUGS (2)
  1. TYKERB [Suspect]
     Indication: PRODUCT USED FOR UNKNOWN INDICATION
     Dosage: 750MG PER DAY
     Dates: start: 20110903
  2. DIPHENHYDRAMINE HYDROCHLORIDE [Suspect]
     Indication: SLEEP DISORDER
     Route: 065
     Dates: start: 20110909, end: 20110909

REACTIONS (4)
  - ARTHRALGIA [None]
  - BONE PAIN [None]
  - DRUG INTERACTION [None]
  - PAIN IN EXTREMITY [None]
